FAERS Safety Report 15114405 (Version 1)
Quarter: 2018Q3

REPORT INFORMATION
  Report Type: Report from Study
  Country: CN (occurrence: CN)
  Receive Date: 20180706
  Receipt Date: 20180706
  Transmission Date: 20181010
  Serious: Yes (Other)
  Sender: FDA-Public Use
  Company Number: PHHY2018CN032467

PATIENT
  Age: 29 Year
  Sex: Female

DRUGS (1)
  1. SEBIVO [Suspect]
     Active Substance: TELBIVUDINE
     Indication: PRODUCT USED FOR UNKNOWN INDICATION
     Dosage: 600 OT, UNK
     Route: 048

REACTIONS (2)
  - Maternal exposure during pregnancy [Unknown]
  - Hepatitis B [Unknown]
